FAERS Safety Report 16296549 (Version 3)
Quarter: 2019Q3

REPORT INFORMATION
  Report Type: Spontaneous
  Country: US (occurrence: US)
  Receive Date: 20190510
  Receipt Date: 20190927
  Transmission Date: 20191004
  Serious: No
  Sender: FDA-Public Use
  Company Number: US-PFIZER INC-2019198272

PATIENT
  Age: 63 Year
  Sex: Male
  Weight: 130.61 kg

DRUGS (13)
  1. BREO ELLIPTA [Concomitant]
     Active Substance: FLUTICASONE FUROATE\VILANTEROL TRIFENATATE
     Indication: WHEEZING
     Dosage: DAILY
     Dates: start: 2016
  2. DIAZEPAM. [Concomitant]
     Active Substance: DIAZEPAM
     Indication: SLEEP DISORDER
  3. TAMSULOSIN [Concomitant]
     Active Substance: TAMSULOSIN
     Dosage: 0.4 MG, DAILY
     Dates: start: 2016
  4. ALBUTEROL HFA [Concomitant]
     Active Substance: ALBUTEROL SULFATE
     Dosage: 2 DF, AS NEEDED [2 PUFFS WHEN NEEDED]
  5. HYDROCHLOROTHIAZIDE. [Concomitant]
     Active Substance: HYDROCHLOROTHIAZIDE
     Dosage: 12.5 MG, 1X/DAY (12.5 MG, ONE OF THOSE EVERYDAY)
     Dates: start: 2016
  6. VENTOLIN [Concomitant]
     Active Substance: ALBUTEROL SULFATE
     Indication: WHEEZING
     Dosage: INHALER
     Dates: start: 2016
  7. CHANTIX [Suspect]
     Active Substance: VARENICLINE TARTRATE
     Indication: SLEEP DISORDER
     Dosage: 1 MG, 2X/DAY
     Dates: start: 201905
  8. ATORVASTATIN CALCIUM. [Concomitant]
     Active Substance: ATORVASTATIN CALCIUM
     Dosage: 20 MG, 1X/DAY
  9. INCRUSE ELLIPTA [Concomitant]
     Active Substance: UMECLIDINIUM BROMIDE
     Dosage: 62.5 MG, DAILY
     Dates: start: 2016
  10. BISACODYL. [Concomitant]
     Active Substance: BISACODYL
     Indication: CONSTIPATION
     Dosage: 5 MG, AS NEEDED
     Dates: start: 2016
  11. DIAZEPAM. [Concomitant]
     Active Substance: DIAZEPAM
     Indication: FEELING OF RELAXATION
     Dosage: 10 MG TWICE A DAY AS NEEDED
     Route: 048
     Dates: start: 2016
  12. CHANTIX [Suspect]
     Active Substance: VARENICLINE TARTRATE
     Indication: SMOKING CESSATION THERAPY
     Dosage: 0.5 MG, (FOR THE FIRST THREE,ONE TIME A DAY AND THEN 2 TIMES A DAY,ONE IN THE MORNING,ONE AT NIGHT)
     Route: 048
     Dates: start: 2019
  13. CYCLOBENZAPRINE. [Concomitant]
     Active Substance: CYCLOBENZAPRINE
     Indication: SLEEP DISORDER
     Dosage: 10 MG, 1X/DAY (ONE AT NIGHT) [AT BED TIME]
     Dates: start: 2016

REACTIONS (3)
  - Weight increased [Unknown]
  - Hallucination, auditory [Unknown]
  - Blood cholesterol increased [Not Recovered/Not Resolved]

NARRATIVE: CASE EVENT DATE: 201905
